FAERS Safety Report 4413100-7 (Version None)
Quarter: 2004Q3

REPORT INFORMATION
  Report Type: 
  Country: None (occurrence: None)
  Receive Date: 20040802
  Receipt Date: 20040723
  Transmission Date: 20050211
  Serious: Yes (Hospitalization)
  Sender: FDA-Public Use
  Company Number: IT-ROCHE-375182

PATIENT
  Age: 40 Year
  Sex: Female
  Weight: 63 kg

DRUGS (3)
  1. CAPECITABINE [Suspect]
     Indication: BREAST CANCER
     Dosage: GIVEN FROM DAYS ONE TO FOURTEEN FOLLOWED BY A WEEK OFF.
     Route: 048
     Dates: start: 20031111, end: 20031121
  2. EPIRUBICIN [Suspect]
     Indication: BREAST CANCER
     Route: 042
     Dates: start: 20031111, end: 20031111
  3. DOCETAXEL [Suspect]
     Indication: BREAST CANCER
     Route: 042
     Dates: start: 20031111, end: 20031111

REACTIONS (7)
  - ANAEMIA [None]
  - DEHYDRATION [None]
  - FEBRILE NEUTROPENIA [None]
  - INTESTINAL PERFORATION [None]
  - NEUTROPENIA [None]
  - PERITONITIS [None]
  - RENAL FAILURE ACUTE [None]
